FAERS Safety Report 4517334-2 (Version None)
Quarter: 2004Q4

REPORT INFORMATION
  Report Type: 
  Country: None (occurrence: None)
  Receive Date: 20041012
  Receipt Date: 20040113
  Transmission Date: 20050328
  Serious: Yes (Hospitalization)
  Sender: FDA-Public Use
  Company Number: 2004-01-0508

PATIENT
  Sex: Female

DRUGS (1)
  1. ISOSORBIDE MONONITRATE [Suspect]
     Dosage: 30 MG ORAL
     Route: 048
     Dates: start: 20030601, end: 20040113

REACTIONS (2)
  - ALOPECIA [None]
  - PNEUMONIA BACTERIAL [None]
